FAERS Safety Report 6162400-1 (Version None)
Quarter: 2009Q2

REPORT INFORMATION
  Report Type: 
  Country: None (occurrence: None)
  Receive Date: 20090421
  Receipt Date: 20090409
  Transmission Date: 20091009
  Serious: Yes (Death, Other)
  Sender: FDA-Public Use
  Company Number: US-PFIZER INC-2009196691

PATIENT
  Age: 69 Year
  Sex: Female
  Weight: 104 kg

DRUGS (22)
  1. MINOXIDIL [Suspect]
     Indication: HYPERTENSION
     Dosage: 2.5 MG, DAILY
  2. ENALAPRIL [Concomitant]
     Indication: HYPERTENSION
     Dosage: 2.5 MG, 2X/DAY
  3. CLOPIDOGREL [Concomitant]
  4. ALLOPURINOL [Concomitant]
  5. ASPIRIN [Concomitant]
  6. CLONIDINE [Concomitant]
  7. DOXERCALCIFEROL [Concomitant]
  8. EPOETIN ALFA [Concomitant]
  9. FOLIC ACID [Concomitant]
  10. FUROSEMIDE [Concomitant]
  11. METOPROLOL [Concomitant]
  12. MULTI-VITAMINS [Concomitant]
  13. NIFEDIPINE [Concomitant]
  14. NITROGLYCERIN [Concomitant]
     Route: 062
  15. PANTOPRAZOLE [Concomitant]
  16. PAROXETINE [Concomitant]
  17. RISPERIDONE [Concomitant]
  18. SIMVASTATIN [Concomitant]
  19. VALSARTAN [Concomitant]
  20. ACETAMINOPHEN AND OXYCODONE HCL [Concomitant]
  21. CEFEPIME [Concomitant]
  22. VANCOMYCIN [Concomitant]

REACTIONS (2)
  - STEVENS-JOHNSON SYNDROME [None]
  - TOXIC EPIDERMAL NECROLYSIS [None]
